FAERS Safety Report 19967024 (Version 1)
Quarter: 2021Q4

REPORT INFORMATION
  Report Type: Spontaneous
  Country: US (occurrence: US)
  Receive Date: 20211019
  Receipt Date: 20211019
  Transmission Date: 20220303
  Serious: Yes (Other)
  Sender: FDA-Public Use
  Company Number: US-ROCHE-2938590

PATIENT
  Sex: Female
  Weight: 80.81 kg

DRUGS (1)
  1. ACTEMRA [Suspect]
     Active Substance: TOCILIZUMAB
     Indication: Autoimmune retinopathy
     Route: 042

REACTIONS (2)
  - Off label use [Unknown]
  - Urticaria [Unknown]
